FAERS Safety Report 5956370-6 (Version None)
Quarter: 2008Q4

REPORT INFORMATION
  Report Type: 
  Country: None (occurrence: None)
  Receive Date: 20081112
  Receipt Date: 20081030
  Transmission Date: 20090506
  Serious: Yes (Hospitalization)
  Sender: FDA-Public Use
  Company Number: 2008AL010158

PATIENT
  Age: 54 Year
  Sex: Male
  Weight: 113.3993 kg

DRUGS (1)
  1. DIGOXIN [Suspect]
     Dosage: DAILY, PO
     Route: 048

REACTIONS (7)
  - EYE ROLLING [None]
  - MALAISE [None]
  - MYOCARDIAL INFARCTION [None]
  - NAUSEA [None]
  - PULSE PRESSURE DECREASED [None]
  - SYNCOPE [None]
  - TUNNEL VISION [None]
